FAERS Safety Report 8159452-6 (Version None)
Quarter: 2012Q1

REPORT INFORMATION
  Report Type: 
  Country: None (occurrence: None)
  Receive Date: 20120223
  Receipt Date: 20120214
  Transmission Date: 20120608
  Serious: Yes (Disabling)
  Sender: FDA-Public Use
  Company Number: GB-TEVA-303912ISR

PATIENT
  Age: 67 Year
  Sex: Female
  Weight: 50 kg

DRUGS (4)
  1. RAMIPRIL [Suspect]
     Indication: HYPERTENSION
     Dosage: LONG TERM
     Route: 048
     Dates: start: 20110407, end: 20111031
  2. INDAPAMIDE [Concomitant]
     Indication: HYPERTENSION
     Dosage: EVERY MORNING. LONG TERM.
     Route: 048
     Dates: start: 20110715
  3. ADCAL-D3 [Concomitant]
     Indication: OSTEOPOROSIS
     Route: 048
     Dates: start: 20101021
  4. ZOPICLONE [Concomitant]
     Indication: INSOMNIA
     Dosage: AS DIRECTED (MDU) / AS REQUIRED (PRN). LONGTERM.
     Route: 048
     Dates: start: 20110201

REACTIONS (3)
  - NAIL DISORDER [None]
  - ONYCHOMYCOSIS [None]
  - COUGH [None]
